FAERS Safety Report 10273221 (Version 1)
Quarter: 2014Q2

REPORT INFORMATION
  Report Type: Spontaneous
  Country: NL (occurrence: None)
  Receive Date: 20140630
  Receipt Date: 20140630
  Transmission Date: 20141212
  Serious: Yes (Hospitalization)
  Sender: FDA-Public Use
  Company Number: SP07982

PATIENT
  Age: 57 Year
  Sex: Female

DRUGS (2)
  1. MOVIPREP (SOLUTION) [Suspect]
     Indication: CONSTIPATION
     Route: 048
     Dates: start: 2013, end: 2013
  2. MOVICOLON [Concomitant]

REACTIONS (6)
  - Constipation [None]
  - Drug ineffective [None]
  - Pain [None]
  - Abdominal pain upper [None]
  - Ascites [None]
  - Malaise [None]
